FAERS Safety Report 21883547 (Version 1)
Quarter: 2023Q1

REPORT INFORMATION
  Report Type: Report from Study
  Country: US (occurrence: US)
  Receive Date: 20230119
  Receipt Date: 20230119
  Transmission Date: 20230418
  Serious: No
  Sender: FDA-Public Use
  Company Number: US-ABBVIE-4245202

PATIENT
  Sex: Male

DRUGS (1)
  1. HUMIRA [Suspect]
     Active Substance: ADALIMUMAB
     Indication: Crohn^s disease
     Dosage: CF
     Route: 058
     Dates: start: 20191004

REACTIONS (5)
  - Oropharyngeal pain [Unknown]
  - Malaise [Recovering/Resolving]
  - Pain [Unknown]
  - Fatigue [Unknown]
  - Stress at work [Unknown]
